FAERS Safety Report 18384617 (Version 1)
Quarter: 2020Q4

REPORT INFORMATION
  Report Type: Spontaneous
  Country: PL (occurrence: PL)
  Receive Date: 20201015
  Receipt Date: 20201015
  Transmission Date: 20210114
  Serious: Yes (Hospitalization)
  Sender: FDA-Public Use
  Company Number: NVSC2020PL272773

PATIENT
  Age: 3 Year
  Sex: Male
  Weight: 13 kg

DRUGS (1)
  1. OSPAMOX [Suspect]
     Active Substance: AMOXICILLIN
     Indication: UPPER RESPIRATORY TRACT INFECTION
     Dosage: 10 ML
     Route: 048
     Dates: start: 20180412, end: 20180417

REACTIONS (2)
  - Arthralgia [Recovering/Resolving]
  - Urticaria [Recovering/Resolving]

NARRATIVE: CASE EVENT DATE: 20180418
